FAERS Safety Report 24705603 (Version 1)
Quarter: 2024Q4

REPORT INFORMATION
  Report Type: Spontaneous
  Country: US (occurrence: US)
  Receive Date: 20241206
  Receipt Date: 20241206
  Transmission Date: 20250115
  Serious: No
  Sender: ALVOGEN
  Company Number: US-ALVOGEN-2024094943

PATIENT
  Sex: Female

DRUGS (1)
  1. LEVOTHYROXINE [Suspect]
     Active Substance: LEVOTHYROXINE
     Indication: Tri-iodothyronine free
     Dosage: STRENGTH: 50 MCG

REACTIONS (3)
  - Illness [Unknown]
  - Nausea [Unknown]
  - Alopecia [Unknown]
